FAERS Safety Report 18732362 (Version 1)
Quarter: 2021Q1

REPORT INFORMATION
  Report Type: Not Available
  Country: US (occurrence: US)
  Receive Date: 20210112
  Receipt Date: 20210112
  Transmission Date: 20210419
  Serious: Yes (Hospitalization, Other)
  Sender: FDA-Public Use
  Company Number: US-C B FLEET CO INC-202012-US-004551

PATIENT
  Sex: Female

DRUGS (1)
  1. BC ARTHRITIS [Suspect]
     Active Substance: ASPIRIN\CAFFEINE
     Indication: PRODUCT USED FOR UNKNOWN INDICATION
     Dosage: TAKING DAILY
     Route: 048

REACTIONS (3)
  - Incorrect product administration duration [None]
  - Product used for unknown indication [None]
  - Gastric haemorrhage [Recovered/Resolved]
